FAERS Safety Report 4617498-6 (Version None)
Quarter: 2005Q1

REPORT INFORMATION
  Report Type: 
  Country: None (occurrence: None)
  Receive Date: 20050324
  Receipt Date: 20050316
  Transmission Date: 20050727
  Serious: Yes (Hospitalization)
  Sender: FDA-Public Use
  Company Number: 200510567DE

PATIENT
  Age: 11 Year
  Sex: Female
  Weight: 42 kg

DRUGS (5)
  1. LANTUS [Suspect]
     Indication: DIABETES MELLITUS INSULIN-DEPENDENT
     Dates: start: 20040526, end: 20030525
  2. INSULIN [Concomitant]
  3. INSUMAN BASAL [Concomitant]
  4. MONOTARD [Concomitant]
     Dates: start: 20030201
  5. INSULIN SEMILENTE [Concomitant]
     Dates: start: 20030201

REACTIONS (9)
  - BLOOD GLUCOSE INCREASED [None]
  - CARDIOVASCULAR DISORDER [None]
  - DIZZINESS [None]
  - GLYCOSYLATED HAEMOGLOBIN INCREASED [None]
  - MEDICATION ERROR [None]
  - PHARMACEUTICAL PRODUCT COMPLAINT [None]
  - PLATELET COUNT INCREASED [None]
  - URINE KETONE BODY [None]
  - VOMITING [None]
